FAERS Safety Report 10397379 (Version 1)
Quarter: 2014Q3

REPORT INFORMATION
  Report Type: Other
  Country: GB (occurrence: GB)
  Receive Date: 20140820
  Receipt Date: 20140820
  Transmission Date: 20150326
  Serious: Yes (Hospitalization, Disabling, Other)
  Sender: FDA-Public Use
  Company Number: GB-MYLAN-2014M1000968

PATIENT

DRUGS (6)
  1. QUETIAPINE [Suspect]
     Active Substance: QUETIAPINE
     Indication: MENTAL DISORDER
     Dosage: 800 MG, UNK
     Route: 048
     Dates: start: 20120104, end: 20120106
  2. CITALOPRAM HYDROBROMIDE. [Suspect]
     Active Substance: CITALOPRAM HYDROBROMIDE
     Indication: MENTAL DISORDER
     Dosage: 50 MG, UNK
     Route: 048
     Dates: start: 20120109, end: 20120313
  3. ANTIPSYCHOTICS [Suspect]
     Active Substance: UNSPECIFIED INGREDIENT
     Indication: MENTAL DISORDER
     Route: 051
     Dates: start: 20120915, end: 20121027
  4. MIDAZOLAM [Suspect]
     Active Substance: MIDAZOLAM\MIDAZOLAM HYDROCHLORIDE
     Indication: MENTAL DISORDER
     Dosage: 50 MG, UNK
     Route: 048
     Dates: start: 20120103, end: 20120106
  5. DULOXETINE [Suspect]
     Active Substance: DULOXETINE
     Indication: MENTAL DISORDER
     Dosage: 60 MG, UNK
     Route: 048
     Dates: start: 20120105, end: 20120106
  6. MIRTAZAPINE. [Concomitant]
     Active Substance: MIRTAZAPINE
     Dosage: UNK

REACTIONS (2)
  - Neuropathy peripheral [Not Recovered/Not Resolved]
  - Documented hypersensitivity to administered drug [Unknown]
